FAERS Safety Report 18425528 (Version 3)
Quarter: 2020Q4

REPORT INFORMATION
  Report Type: Spontaneous
  Country: US (occurrence: US)
  Receive Date: 20201026
  Receipt Date: 20201201
  Transmission Date: 20210114
  Serious: Yes (Other)
  Sender: FDA-Public Use
  Company Number: US-PFIZER INC-2020412321

PATIENT
  Age: 59 Year
  Sex: Female

DRUGS (3)
  1. XELJANZ XR [Suspect]
     Active Substance: TOFACITINIB CITRATE
     Indication: RHEUMATOID ARTHRITIS
     Dosage: 11 MG, 1X/DAY
     Route: 048
     Dates: start: 202010
  2. PLAQUENIL [Concomitant]
     Active Substance: HYDROXYCHLOROQUINE SULFATE
     Dosage: 1 DF, DAILY
  3. PREDNISONE. [Concomitant]
     Active Substance: PREDNISONE
     Dosage: UNK, AS NEEDED

REACTIONS (14)
  - Pruritus [Recovering/Resolving]
  - Abdominal pain [Not Recovered/Not Resolved]
  - Chills [Unknown]
  - Thirst [Unknown]
  - Vision blurred [Unknown]
  - Illness [Unknown]
  - Asthenia [Unknown]
  - Hypersomnia [Unknown]
  - Condition aggravated [Unknown]
  - Anxiety [Unknown]
  - Nodule [Recovered/Resolved]
  - Pyrexia [Unknown]
  - Blindness transient [Unknown]
  - Diarrhoea [Unknown]

NARRATIVE: CASE EVENT DATE: 202010
